FAERS Safety Report 5638866-X (Version None)
Quarter: 2008Q1

REPORT INFORMATION
  Report Type: 
  Country: None (occurrence: None)
  Receive Date: 20080222
  Receipt Date: 20080222
  Transmission Date: 20080703
  Serious: Yes (Other)
  Sender: FDA-Public Use
  Company Number: None

PATIENT
  Age: 55 Year
  Sex: Female
  Weight: 59 kg

DRUGS (4)
  1. ERLOTINIB 100MG [Suspect]
     Indication: NON-SMALL CELL LUNG CANCER
     Dosage: 100MG PO QD
     Route: 048
     Dates: start: 20050113
  2. AMBIEN [Concomitant]
  3. AMITRIPTYLINE HCL [Concomitant]
  4. COMBIVENT [Concomitant]

REACTIONS (4)
  - DISCOMFORT [None]
  - RASH PAPULAR [None]
  - ROSAI-DORFMAN SYNDROME [None]
  - XANTHOGRANULOMA [None]
